FAERS Safety Report 4585831-X (Version None)
Quarter: 2005Q1

REPORT INFORMATION
  Report Type: 
  Country: None (occurrence: None)
  Receive Date: 20050214
  Receipt Date: 20040620
  Transmission Date: 20050727
  Serious: Yes (Hospitalization)
  Sender: FDA-Public Use
  Company Number: GXKR2003GB00472

PATIENT
  Age: 59 Year
  Sex: Female

DRUGS (5)
  1. DIAZEPAM [Suspect]
     Indication: ANXIETY
     Dosage: 5 MG/TID/PRN, ORAL
     Route: 048
     Dates: start: 20030527, end: 20030601
  2. BENDROFLUAZIDE(BENDROFLUMETHIAZIDE) [Suspect]
     Indication: HYPERTENSION
     Dosage: 2.5 MG, QD, ORAL
     Route: 048
     Dates: start: 20030520, end: 20030601
  3. CANDESARTAN (CANDESARTAN) [Concomitant]
  4. ADALAT [Concomitant]
  5. ESCITALOPRAM (ESCITALOPRAM) [Concomitant]

REACTIONS (1)
  - HYPONATRAEMIA [None]
